FAERS Safety Report 25424972 (Version 1)
Quarter: 2025Q2

REPORT INFORMATION
  Report Type: Spontaneous
  Country: US (occurrence: US)
  Receive Date: 20250611
  Receipt Date: 20250611
  Transmission Date: 20250717
  Serious: No
  Sender: SANOFI AVENTIS
  Company Number: US-SA-2025SA165103

PATIENT
  Age: 55 Year
  Sex: Male

DRUGS (3)
  1. DUPIXENT [Suspect]
     Active Substance: DUPILUMAB
     Indication: Dermatitis atopic
     Dosage: 300 MG, QOW
     Route: 058
     Dates: start: 2025
  2. DUPIXENT [Suspect]
     Active Substance: DUPILUMAB
     Route: 058
     Dates: start: 202503, end: 202503
  3. WEGOVY [Concomitant]
     Active Substance: SEMAGLUTIDE

REACTIONS (6)
  - Weight decreased [Unknown]
  - Rebound effect [Unknown]
  - Pruritus [Unknown]
  - Injection site pain [Unknown]
  - Incorrect dose administered [Unknown]
  - Therapeutic response shortened [Unknown]

NARRATIVE: CASE EVENT DATE: 20250101
